FAERS Safety Report 5403744-8 (Version None)
Quarter: 2007Q3

REPORT INFORMATION
  Report Type: 
  Country: None (occurrence: None)
  Receive Date: 20070713
  Receipt Date: 20070430
  Transmission Date: 20080115
  Serious: Yes (Other)
  Sender: FDA-Public Use
  Company Number: 2007028446

PATIENT
  Age: 26 Year
  Sex: Female
  Weight: 53 kg

DRUGS (3)
  1. DEPO-SUBQ PROVERA 104 [Suspect]
     Indication: CONTRACEPTION
     Dosage: SEE IMAGE
     Route: 058
     Dates: start: 20061001, end: 20061001
  2. DEPO-SUBQ PROVERA 104 [Suspect]
     Indication: CONTRACEPTION
     Dosage: SEE IMAGE
     Route: 058
     Dates: start: 20070101, end: 20070101
  3. DEPO-SUBQ PROVERA 104 [Suspect]
     Indication: CONTRACEPTION
     Dosage: SEE IMAGE
     Route: 058
     Dates: start: 20070404, end: 20070404

REACTIONS (3)
  - INJECTION SITE CELLULITIS [None]
  - INJECTION SITE INDURATION [None]
  - INJECTION SITE PAIN [None]
